FAERS Safety Report 9645608 (Version 1)
Quarter: 2013Q4

REPORT INFORMATION
  Report Type: Spontaneous
  Country: US (occurrence: None)
  Receive Date: 20131024
  Receipt Date: 20131024
  Transmission Date: 20140711
  Serious: Yes (Death)
  Sender: FDA-Public Use
  Company Number: None

PATIENT
  Sex: 0

DRUGS (1)
  1. REVLIMID 10MG CELGENE [Suspect]
     Indication: LEUKAEMIA
     Route: 048
     Dates: start: 20130919

REACTIONS (1)
  - Death [None]
